FAERS Safety Report 8584078-X (Version None)
Quarter: 2012Q3

REPORT INFORMATION
  Report Type: 
  Country: None (occurrence: None)
  Receive Date: 20120810
  Receipt Date: 20120723
  Transmission Date: 20120928
  Serious: Yes (Hospitalization, Other)
  Sender: FDA-Public Use
  Company Number: US-009507513-1207USA011295

PATIENT

DRUGS (20)
  1. ACETAMINOPHEN [Concomitant]
  2. CALCIUM (UNSPECIFIED) [Concomitant]
  3. PREDNISONE TAB [Concomitant]
  4. ACTONEL [Concomitant]
  5. MULTI-VITAMINS [Concomitant]
  6. ZOCOR [Suspect]
     Dosage: 20 MG, UNK
     Route: 048
  7. LIPITOR [Suspect]
     Dosage: 20 MG, QPM
     Route: 048
  8. COZAAR [Concomitant]
     Dosage: 50MG/12.5MG
  9. DOXAZOSIN MESYLATE [Concomitant]
  10. FOSAMAX [Suspect]
     Route: 048
  11. VITAMIN E [Concomitant]
  12. VITAMIN D [Concomitant]
  13. NEXIUM [Concomitant]
     Dosage: 40 MG, UNK
  14. DUACT [Concomitant]
     Dosage: UNK, QOD
  15. PRILOSEC [Concomitant]
  16. RAMIPRIL [Suspect]
     Dosage: 5 MG, UNK
  17. DETROL [Concomitant]
  18. PROCRIT [Concomitant]
  19. LIPITOR [Suspect]
     Dosage: 10 MG, QPM
     Route: 048
  20. ASPIRIN [Concomitant]

REACTIONS (35)
  - VOMITING [None]
  - FATIGUE [None]
  - CONSTIPATION [None]
  - THYMUS DISORDER [None]
  - OBSTRUCTION [None]
  - HYPERLIPIDAEMIA [None]
  - CARDIAC DISORDER [None]
  - CHOLANGITIS [None]
  - MUSCLE SPASMS [None]
  - LYMPH NODE PAIN [None]
  - HEADACHE [None]
  - TRANSIENT ISCHAEMIC ATTACK [None]
  - FAECALOMA [None]
  - TOXICITY TO VARIOUS AGENTS [None]
  - WHITE BLOOD CELL COUNT INCREASED [None]
  - AMYLASE INCREASED [None]
  - OEDEMA PERIPHERAL [None]
  - RHINITIS ALLERGIC [None]
  - ABDOMINAL PAIN UPPER [None]
  - HEPATIC STEATOSIS [None]
  - MUSCULOSKELETAL PAIN [None]
  - CHEST PAIN [None]
  - C-REACTIVE PROTEIN INCREASED [None]
  - SYNOVIAL RUPTURE [None]
  - COUGH [None]
  - HYPERTENSION [None]
  - HEPATIC ENZYME INCREASED [None]
  - BLOOD CHOLESTEROL INCREASED [None]
  - PNEUMONIA [None]
  - POLYMYALGIA RHEUMATICA [None]
  - ABDOMINAL PAIN [None]
  - DIAPHRAGMATIC DISORDER [None]
  - CATARACT [None]
  - AORTIC STENOSIS [None]
  - LEFT VENTRICULAR HYPERTROPHY [None]
